FAERS Safety Report 5570046-9 (Version None)
Quarter: 2007Q4

REPORT INFORMATION
  Report Type: 
  Country: None (occurrence: None)
  Receive Date: 20071214
  Receipt Date: 20071204
  Transmission Date: 20080405
  Serious: Yes (Hospitalization)
  Sender: FDA-Public Use
  Company Number: M7001-02889-CLI-DE

PATIENT
  Sex: Female

DRUGS (1)
  1. TARGRETIN [Suspect]
     Dosage: ORAL
     Route: 048

REACTIONS (1)
  - DIVERTICULITIS [None]
